FAERS Safety Report 5674349-9 (Version None)
Quarter: 2008Q1

REPORT INFORMATION
  Report Type: 
  Country: None (occurrence: None)
  Receive Date: 20080320
  Receipt Date: 20080307
  Transmission Date: 20080703
  Serious: Yes (Hospitalization)
  Sender: FDA-Public Use
  Company Number: US-AMGEN-QUU268746

PATIENT
  Sex: Male

DRUGS (2)
  1. ENBREL [Suspect]
     Indication: RHEUMATOID ARTHRITIS
     Route: 058
     Dates: start: 20010101
  2. METHOTREXATE [Concomitant]

REACTIONS (3)
  - HEPATOCELLULAR INJURY [None]
  - RHEUMATOID ARTHRITIS [None]
  - VARICES OESOPHAGEAL [None]
